FAERS Safety Report 5385223-X (Version None)
Quarter: 2007Q3

REPORT INFORMATION
  Report Type: 
  Country: None (occurrence: None)
  Receive Date: 20070709
  Receipt Date: 20070627
  Transmission Date: 20080115
  Serious: Yes (Disabling)
  Sender: FDA-Public Use
  Company Number: CIP07001049

PATIENT
  Age: 70 Year
  Sex: Female

DRUGS (1)
  1. ACTONEL [Suspect]
     Indication: OSTEOPOROSIS
     Dosage: 35 MG ONCE WEEKLY, ORAL
     Route: 048
     Dates: start: 20030930

REACTIONS (5)
  - BONE MARROW OEDEMA [None]
  - DRUG INEFFECTIVE [None]
  - GROIN PAIN [None]
  - NEOPLASM [None]
  - OSTEONECROSIS [None]
